FAERS Safety Report 10083523 (Version 1)
Quarter: 2014Q2

REPORT INFORMATION
  Report Type: Spontaneous
  Country: US (occurrence: None)
  Receive Date: 20140416
  Receipt Date: 20140416
  Transmission Date: 20141212
  Serious: Yes (Life-Threatening, Disabling)
  Sender: FDA-Public Use
  Company Number: None

PATIENT
  Age: 56 Year
  Sex: Female
  Weight: 77.11 kg

DRUGS (1)
  1. TIMOPTIC [Suspect]
     Indication: GLAUCOMA
     Dosage: 1 DROP, TWICE DAILY, INTO THE EYE
     Dates: start: 20140401, end: 20140402

REACTIONS (10)
  - Syncope [None]
  - Disorientation [None]
  - Nausea [None]
  - Vomiting [None]
  - Tinnitus [None]
  - Dysstasia [None]
  - Bradycardia [None]
  - Malaise [None]
  - Dyspnoea [None]
  - Impaired work ability [None]
